FAERS Safety Report 5528941-2 (Version None)
Quarter: 2007Q4

REPORT INFORMATION
  Report Type: 
  Country: None (occurrence: None)
  Receive Date: 20071126
  Receipt Date: 20071115
  Transmission Date: 20080405
  Serious: Yes (Hospitalization)
  Sender: FDA-Public Use
  Company Number: 2007-165633-NL

PATIENT
  Age: 48 Year
  Sex: Female

DRUGS (1)
  1. ETONOGESTREL [Suspect]
     Dates: start: 20070717

REACTIONS (5)
  - BLOOD PRESSURE INCREASED [None]
  - CAROTID ARTERIOSCLEROSIS [None]
  - CORONARY ARTERY OCCLUSION [None]
  - MYOCARDIAL INFARCTION [None]
  - TACHYCARDIA [None]
